FAERS Safety Report 10502483 (Version 5)
Quarter: 2014Q4

REPORT INFORMATION
  Report Type: Report from Study
  Country: FR (occurrence: FR)
  Receive Date: 20141007
  Receipt Date: 20141208
  Transmission Date: 20150528
  Serious: Yes (Death, Life-Threatening, Hospitalization)
  Sender: FDA-Public Use
  Company Number: PHHY2014FR129744

PATIENT
  Age: 75 Year
  Sex: Male

DRUGS (1)
  1. EVEROLIMUS [Suspect]
     Active Substance: EVEROLIMUS
     Indication: RENAL CELL CARCINOMA
     Dosage: 10 MG, QD
     Route: 048
     Dates: start: 20140417, end: 20140804

REACTIONS (9)
  - Dyspnoea [Fatal]
  - Pain [Fatal]
  - Serum ferritin decreased [Fatal]
  - Chest pain [Fatal]
  - Malignant neoplasm progression [Fatal]
  - Fatigue [Fatal]
  - Blood iron decreased [Fatal]
  - Anaemia [Fatal]
  - Interstitial lung disease [Fatal]

NARRATIVE: CASE EVENT DATE: 201404
